FAERS Safety Report 9346258 (Version 1)
Quarter: 2013Q2

REPORT INFORMATION
  Report Type: Spontaneous
  Country: US (occurrence: US)
  Receive Date: 20130613
  Receipt Date: 20130613
  Transmission Date: 20140414
  Serious: No
  Sender: FDA-Public Use
  Company Number: US-ASTRAZENECA-2013SE38518

PATIENT
  Age: 27 Year
  Sex: Male

DRUGS (1)
  1. SEROQUEL XR [Suspect]
     Indication: SLEEP DISORDER
     Route: 048

REACTIONS (3)
  - Insomnia [Unknown]
  - Off label use [Unknown]
  - Drug dose omission [Unknown]
